FAERS Safety Report 4983742-9 (Version None)
Quarter: 2006Q1

REPORT INFORMATION
  Report Type: 
  Country: None (occurrence: None)
  Receive Date: 20060301
  Receipt Date: 20050425
  Transmission Date: 20060701
  Serious: Yes (Other)
  Sender: FDA-Public Use
  Company Number: 141938USA

PATIENT
  Age: 84 Year
  Sex: Male

DRUGS (1)
  1. CEPHALEXIN [Suspect]
     Indication: ARTHRITIS INFECTIVE
     Dosage: 500 MILLIGRAM ORAL
     Route: 048
     Dates: start: 20050425, end: 20050425

REACTIONS (1)
  - ABDOMINAL PAIN UPPER [None]
